FAERS Safety Report 6620357-0 (Version None)
Quarter: 2010Q1

REPORT INFORMATION
  Report Type: 
  Country: None (occurrence: None)
  Receive Date: 20100309
  Receipt Date: 20100301
  Transmission Date: 20100710
  Serious: Yes (Hospitalization)
  Sender: FDA-Public Use
  Company Number: US-JNJFOC-20100100754

PATIENT
  Sex: Female
  Weight: 68.04 kg

DRUGS (10)
  1. TYLENOL [Suspect]
     Route: 048
  2. TYLENOL [Suspect]
     Indication: ARTHRALGIA
     Dosage: TOOK PRODUCT AS NEEDED, NOT EVERY DAY.
     Route: 048
  3. LISINOPRIL [Concomitant]
     Indication: HYPERTENSION
  4. ZOCOR [Concomitant]
     Indication: BLOOD CHOLESTEROL INCREASED
  5. HYDROCHLOROTHIAZIDE [Concomitant]
  6. XANAX [Concomitant]
  7. COENZYME Q10 [Concomitant]
  8. MOTRIN [Concomitant]
  9. FOLATE [Concomitant]
  10. ASPIRIN [Concomitant]

REACTIONS (4)
  - COLITIS ISCHAEMIC [None]
  - DIZZINESS [None]
  - PRODUCT QUALITY ISSUE [None]
  - RECTAL HAEMORRHAGE [None]
